FAERS Safety Report 11789176 (Version 1)
Quarter: 2015Q4

REPORT INFORMATION
  Report Type: Report from Study
  Country: ZA (occurrence: ZA)
  Receive Date: 20151201
  Receipt Date: 20151201
  Transmission Date: 20160305
  Serious: Yes (Death, Other)
  Sender: FDA-Public Use
  Company Number: ZA-BRISTOL-MYERS SQUIBB COMPANY-10559060

PATIENT
  Age: 23 Year
  Sex: Female

DRUGS (7)
  1. KETOROLAC [Concomitant]
     Active Substance: KETOROLAC\KETOROLAC TROMETHAMINE
     Indication: HIV INFECTION
     Dosage: 30 MG, UNK
     Route: 065
     Dates: start: 20001005, end: 20001005
  2. ATAZANAVIR SULFATE [Suspect]
     Active Substance: ATAZANAVIR SULFATE
     Indication: HIV INFECTION
     Dosage: 500 MG, TID
     Route: 048
     Dates: start: 19991111, end: 20001008
  3. I RON [Concomitant]
     Indication: PRODUCT USED FOR UNKNOWN INDICATION
     Dosage: UNK
     Route: 065
     Dates: start: 19990527, end: 20001009
  4. FOLATE [Concomitant]
     Active Substance: FOLATE SODIUM
     Indication: PRODUCT USED FOR UNKNOWN INDICATION
     Dosage: UNK
     Route: 065
     Dates: start: 20000527, end: 20001009
  5. DIDANOSINE. [Suspect]
     Active Substance: DIDANOSINE
     Indication: HIV INFECTION
     Dosage: 250 MG, QD
     Route: 048
     Dates: start: 19991210, end: 20001009
  6. STAVUDINE. [Suspect]
     Active Substance: STAVUDINE
     Indication: HIV INFECTION
     Dosage: 30 MG, BID
     Route: 048
     Dates: start: 19991111, end: 20001009
  7. BECLOMETHASONE [Concomitant]
     Active Substance: BECLOMETHASONE
     Indication: PRODUCT USED FOR UNKNOWN INDICATION
     Dosage: UNK
     Route: 065
     Dates: start: 20000527, end: 20001009

REACTIONS (8)
  - Pregnancy [Recovered/Resolved]
  - Hepatic steatosis [Not Recovered/Not Resolved]
  - Lactic acidosis [Unknown]
  - Caesarean section [Unknown]
  - Upper gastrointestinal haemorrhage [Fatal]
  - Premature separation of placenta [Unknown]
  - Normal newborn [Unknown]
  - Haematemesis [Fatal]

NARRATIVE: CASE EVENT DATE: 2000
